FAERS Safety Report 4392689-0 (Version None)
Quarter: 2004Q3

REPORT INFORMATION
  Report Type: 
  Country: None (occurrence: None)
  Receive Date: 20040702
  Receipt Date: 20040622
  Transmission Date: 20050211
  Serious: Yes (Life-Threatening)
  Sender: FDA-Public Use
  Company Number: 122-20785-04060508

PATIENT
  Sex: 0

DRUGS (1)
  1. THALIDOMIDE (THALIDOMIDE) (TABLETS) [Suspect]
     Indication: MULTIPLE MYELOMA
     Dosage: SEE IMAGE
     Route: 048

REACTIONS (2)
  - CONSTIPATION [None]
  - ILEUS PARALYTIC [None]
